FAERS Safety Report 7081718-1 (Version None)
Quarter: 2010Q4

REPORT INFORMATION
  Report Type: 
  Country: None (occurrence: None)
  Receive Date: 20101025
  Receipt Date: 20101014
  Transmission Date: 20110411
  Serious: Yes (Other)
  Sender: FDA-Public Use
  Company Number: 2010-3376

PATIENT
  Age: 49 Year
  Sex: Male
  Weight: 110 kg

DRUGS (2)
  1. SOMATULINE DEPOT [Suspect]
     Indication: ACROMEGALY
     Dosage: 120 MG (120 MG, 1 IN 4 WK), SUBCUTANEOUS
     Route: 058
     Dates: start: 20050101
  2. SOMAVERT [Concomitant]

REACTIONS (1)
  - INJECTION SITE ABSCESS [None]
